FAERS Safety Report 6161096-2 (Version None)
Quarter: 2009Q2

REPORT INFORMATION
  Report Type: 
  Country: None (occurrence: None)
  Receive Date: 20090421
  Receipt Date: 20081022
  Transmission Date: 20091009
  Serious: Yes (Hospitalization)
  Sender: FDA-Public Use
  Company Number: DE-B.I. PHARMACEUTICALS,INC./RIDGEFIELD-2008-DE-02223DE

PATIENT
  Sex: Female
  Weight: 79 kg

DRUGS (5)
  1. AGGRENOX [Suspect]
     Indication: CEREBROVASCULAR ACCIDENT PROPHYLAXIS
     Dosage: STRENGTH: 200MG/25MG, DAILY DOSE: TWICE
     Route: 048
     Dates: start: 20080305
  2. SIMVASTATIN [Concomitant]
     Indication: HYPERCHOLESTEROLAEMIA
     Dosage: 40MG
     Route: 048
  3. OLMESARTAN [Concomitant]
     Indication: HYPERTENSION
     Dosage: 20MG
     Route: 048
     Dates: start: 20080302
  4. BISOPROLOL [Concomitant]
     Indication: HYPERTENSION
     Dosage: 5MG
     Route: 048
     Dates: start: 20080229
  5. HYDROCHLOROTHIAZIDE [Concomitant]
     Indication: HYPERTENSION
     Dosage: 12.5MG
     Route: 048
     Dates: start: 20080229

REACTIONS (1)
  - VITREOUS HAEMORRHAGE [None]
